FAERS Safety Report 8247490-4 (Version None)
Quarter: 2012Q1

REPORT INFORMATION
  Report Type: 
  Country: None (occurrence: None)
  Receive Date: 20120330
  Receipt Date: 20120322
  Transmission Date: 20120608
  Serious: Yes (Hospitalization)
  Sender: FDA-Public Use
  Company Number: US-B.I. PHARMACEUTICALS,INC./RIDGEFIELD-2012-BP-02943BP

PATIENT
  Sex: Female
  Weight: 108.41 kg

DRUGS (9)
  1. CYMBALTA [Concomitant]
     Indication: DEPRESSION
     Dosage: 120 MG
     Route: 048
  2. SYNTHROID [Concomitant]
     Indication: HYPOTHYROIDISM
     Dosage: 0.75 MG
     Route: 048
  3. SEROQUEL [Concomitant]
     Indication: SLEEP DISORDER
     Route: 048
  4. XANAX [Concomitant]
     Indication: STRESS
     Route: 048
  5. LORTAB [Concomitant]
  6. MIRAPEX [Suspect]
     Indication: RESTLESS LEGS SYNDROME
     Dosage: 1.5 MG
     Route: 048
     Dates: start: 20110712
  7. NEXIUM [Concomitant]
  8. ACTOPLUS METFORMIN [Concomitant]
  9. DETROL LA [Concomitant]

REACTIONS (2)
  - FALL [None]
  - JOINT DISLOCATION [None]
